FAERS Safety Report 23152399 (Version 1)
Quarter: 2023Q4

REPORT INFORMATION
  Report Type: Spontaneous
  Country: US (occurrence: US)
  Receive Date: 20231107
  Receipt Date: 20231107
  Transmission Date: 20240110
  Serious: No
  Sender: FDA-Public Use
  Company Number: US-OPELLA-2023OHG011346

PATIENT
  Sex: Female

DRUGS (1)
  1. ASPERCREME LIDOCAINE NO-MESS PLUS LAVENDER [Suspect]
     Active Substance: LIDOCAINE HYDROCHLORIDE
     Indication: Musculoskeletal discomfort

REACTIONS (2)
  - Drug ineffective [Unknown]
  - No adverse event [Unknown]
